FAERS Safety Report 25395027 (Version 1)
Quarter: 2025Q2

REPORT INFORMATION
  Report Type: Spontaneous
  Country: IN (occurrence: IN)
  Receive Date: 20250604
  Receipt Date: 20250604
  Transmission Date: 20250717
  Serious: Yes (Hospitalization, Other)
  Sender: RANBAXY
  Company Number: IN-SUN PHARMACEUTICAL INDUSTRIES INC-2025R1-509433

PATIENT
  Age: 21 Year
  Sex: Male

DRUGS (1)
  1. FERROUS SULFATE [Suspect]
     Active Substance: FERROUS SULFATE
     Indication: Product used for unknown indication
     Route: 065

REACTIONS (9)
  - Overdose [Unknown]
  - Coagulopathy [Recovering/Resolving]
  - Blood lactic acid increased [Recovering/Resolving]
  - Acute hepatic failure [Recovering/Resolving]
  - Ammonia increased [Recovering/Resolving]
  - Encephalopathy [Recovering/Resolving]
  - Metabolic acidosis [Recovering/Resolving]
  - Transaminases increased [Recovering/Resolving]
  - Hyperbilirubinaemia [Recovering/Resolving]
